FAERS Safety Report 19700676 (Version 1)
Quarter: 2021Q3

REPORT INFORMATION
  Report Type: Spontaneous
  Country: FR (occurrence: FR)
  Receive Date: 20210813
  Receipt Date: 20210813
  Transmission Date: 20211014
  Serious: Yes (Hospitalization)
  Sender: FDA-Public Use
  Company Number: FR-ASTRAZENECA-2021A664870

PATIENT
  Age: 46 Year
  Sex: Male

DRUGS (3)
  1. XEROQUEL [Suspect]
     Active Substance: QUETIAPINE FUMARATE
     Indication: PRODUCT USED FOR UNKNOWN INDICATION
     Dosage: 400.0MG UNKNOWN
     Route: 048
  2. BACLOFEN. [Suspect]
     Active Substance: BACLOFEN
     Route: 065
  3. VALIUM [Suspect]
     Active Substance: DIAZEPAM
     Route: 065

REACTIONS (1)
  - Road traffic accident [Unknown]
